FAERS Safety Report 4296123-0 (Version None)
Quarter: 2004Q1

REPORT INFORMATION
  Report Type: 
  Country: None (occurrence: None)
  Receive Date: 20040217
  Receipt Date: 20030820
  Transmission Date: 20041129
  Serious: No
  Sender: FDA-Public Use
  Company Number: US-GLAXOSMITHKLINE-A0422720A

PATIENT
  Sex: Female

DRUGS (1)
  1. LAMICTAL [Suspect]
     Indication: BIPOLAR DISORDER
     Dosage: 25MG TWICE PER DAY
     Route: 048
     Dates: start: 20030706

REACTIONS (5)
  - CHEST PAIN [None]
  - CHILLS [None]
  - DRUG INEFFECTIVE [None]
  - DYSGEUSIA [None]
  - PAIN IN EXTREMITY [None]
